FAERS Safety Report 12127822 (Version 1)
Quarter: 2016Q1

REPORT INFORMATION
  Report Type: Spontaneous
  Country: JP (occurrence: JP)
  Receive Date: 20160229
  Receipt Date: 20160229
  Transmission Date: 20160526
  Serious: Yes (Hospitalization, Other)
  Sender: FDA-Public Use
  Company Number: JP-NORTHSTAR HEALTHCARE HOLDINGS-JP-2016NSR001071

PATIENT

DRUGS (1)
  1. ALLOPURINOL. [Suspect]
     Active Substance: ALLOPURINOL
     Indication: HYPERURICAEMIA

REACTIONS (12)
  - Renal impairment [Recovered/Resolved]
  - Lymphocytic infiltration [Recovered/Resolved]
  - Ascites [Recovered/Resolved]
  - Coagulopathy [Recovered/Resolved]
  - Hepatic function abnormal [Recovered/Resolved]
  - Phlebosclerosis [Recovered/Resolved]
  - Blast cell proliferation [Recovered/Resolved]
  - Hepatic atrophy [Recovered/Resolved]
  - Jaundice [Recovered/Resolved]
  - Drug-induced liver injury [Recovered/Resolved]
  - Cholestatic liver injury [Recovered/Resolved]
  - Liver transplant [Recovered/Resolved]
